FAERS Safety Report 9188705 (Version 1)
Quarter: 2013Q1

REPORT INFORMATION
  Report Type: Spontaneous
  Country: US (occurrence: US)
  Receive Date: 20130325
  Receipt Date: 20130325
  Transmission Date: 20140127
  Serious: No
  Sender: FDA-Public Use
  Company Number: US-PFIZER INC-2013096298

PATIENT
  Sex: Female

DRUGS (1)
  1. CHANTIX [Suspect]
     Dosage: UNK
     Dates: start: 201303

REACTIONS (6)
  - Tobacco withdrawal symptoms [Unknown]
  - Tremor [Unknown]
  - Chills [Unknown]
  - Malaise [Unknown]
  - Night sweats [Unknown]
  - Nausea [Unknown]
